FAERS Safety Report 7732758-8 (Version None)
Quarter: 2011Q3

REPORT INFORMATION
  Report Type: 
  Country: None (occurrence: None)
  Receive Date: 20110901
  Receipt Date: 20101007
  Transmission Date: 20111222
  Serious: Yes (Life-Threatening, Hospitalization)
  Sender: FDA-Public Use
  Company Number: GAM-288-10-US

PATIENT
  Age: 84 Year
  Sex: Female

DRUGS (1)
  1. OCTAGAM [Suspect]
     Indication: CHRONIC LYMPHOCYTIC LEUKAEMIA
     Dosage: 40 GM, IV
     Route: 042
     Dates: start: 20100506, end: 20100506

REACTIONS (1)
  - ACUTE MYOCARDIAL INFARCTION [None]
